FAERS Safety Report 19985242 (Version 1)
Quarter: 2021Q4

REPORT INFORMATION
  Report Type: Spontaneous
  Country: US (occurrence: US)
  Receive Date: 20211022
  Receipt Date: 20211022
  Transmission Date: 20220303
  Serious: No
  Sender: FDA-Public Use
  Company Number: US-BAYER-2021A232016

PATIENT
  Age: 90 Year
  Sex: Male
  Weight: 58.97 kg

DRUGS (4)
  1. CLARITIN [Suspect]
     Active Substance: LORATADINE
     Indication: Swelling face
     Dosage: UNK
     Dates: start: 20211012
  2. CLARITIN [Suspect]
     Active Substance: LORATADINE
     Indication: Hypersensitivity
  3. CLARITIN [Suspect]
     Active Substance: LORATADINE
     Indication: Pharyngeal swelling
  4. COMIRNATY [Concomitant]
     Active Substance: TOZINAMERAN
     Dosage: UNK UNK, ONCE, FIRST DOSE
     Dates: start: 20211013, end: 20211013

REACTIONS (5)
  - Drug ineffective for unapproved indication [Not Recovered/Not Resolved]
  - Feeling hot [None]
  - Dizziness [Not Recovered/Not Resolved]
  - Asthenia [Not Recovered/Not Resolved]
  - Palpitations [None]

NARRATIVE: CASE EVENT DATE: 20211001
